FAERS Safety Report 15168494 (Version 2)
Quarter: 2018Q3

REPORT INFORMATION
  Report Type: Spontaneous
  Country: DE (occurrence: DE)
  Receive Date: 20180719
  Receipt Date: 20180820
  Transmission Date: 20181010
  Serious: Yes (Death, Hospitalization, Other)
  Sender: FDA-Public Use
  Company Number: PHHY2014DE185185

PATIENT
  Age: 66 Year
  Sex: Male
  Weight: 97 kg

DRUGS (23)
  1. 5?FLUOROURACIL [Suspect]
     Active Substance: FLUOROURACIL
     Dosage: 5135 MG, Q2W
     Route: 042
     Dates: start: 20140402
  2. FOLINIC ACID [Concomitant]
     Active Substance: LEUCOVORIN
     Indication: COLORECTAL CANCER
     Dosage: 855 MG, Q2W
     Route: 042
     Dates: start: 20140107
  3. ALLOPURINOL. [Concomitant]
     Active Substance: ALLOPURINOL
     Indication: PRODUCT USED FOR UNKNOWN INDICATION
     Dosage: 100 MG, QD
     Route: 048
  4. OXALIPLATIN. [Suspect]
     Active Substance: OXALIPLATIN
     Indication: COLORECTAL CANCER
     Dosage: 212 MG,UNK (ON DAY 1 AND 8; EVERY 22 DAYSWITH BEVACIZUMAB)
     Route: 042
  5. 5?FLUOROURACIL [Suspect]
     Active Substance: FLUOROURACIL
     Dosage: 430 MBQ, Q3W
     Route: 040
     Dates: start: 20140305
  6. BEVACIZUMAB. [Suspect]
     Active Substance: BEVACIZUMAB
     Dosage: 485 MG, Q2W
     Route: 042
     Dates: start: 20140508
  7. OXALIPLATIN. [Suspect]
     Active Substance: OXALIPLATIN
     Dosage: 214 MG, Q2W
     Route: 042
     Dates: start: 20140107
  8. OXALIPLATIN. [Suspect]
     Active Substance: OXALIPLATIN
     Dosage: 214 MG, Q2W
     Route: 042
     Dates: start: 20140402
  9. CAPECITABINE. [Suspect]
     Active Substance: CAPECITABINE
     Indication: COLORECTAL CANCER
     Dosage: 4300 MG, Q3W
     Route: 048
     Dates: start: 20140508
  10. 5?FLUOROURACIL [Suspect]
     Active Substance: FLUOROURACIL
     Indication: COLORECTAL CANCER
     Dosage: 855 MG, Q2W (48 HOUR PUMP)
     Route: 040
     Dates: start: 20140107
  11. FOLINIC ACID [Concomitant]
     Active Substance: LEUCOVORIN
     Dosage: 855 MG, UNK
     Route: 042
     Dates: start: 20140402
  12. 5?FLUOROURACIL [Suspect]
     Active Substance: FLUOROURACIL
     Dosage: 855 MG, Q2W
     Route: 040
     Dates: start: 20140128
  13. BEVACIZUMAB. [Suspect]
     Active Substance: BEVACIZUMAB
     Indication: COLORECTAL CANCER METASTATIC
     Dosage: 485 MG, Q2W (MAINTANENCE DOSE)
     Route: 042
     Dates: start: 20130305
  14. BEVACIZUMAB. [Suspect]
     Active Substance: BEVACIZUMAB
     Dosage: 485 MG, Q2W
     Route: 042
     Dates: start: 20140128
  15. BEVACIZUMAB. [Suspect]
     Active Substance: BEVACIZUMAB
     Dosage: 240 MG, Q3W
     Route: 042
     Dates: start: 20140226
  16. NEUPOGEN [Concomitant]
     Active Substance: FILGRASTIM
     Indication: PRODUCT USED FOR UNKNOWN INDICATION
     Dosage: UNK
     Route: 065
  17. CAPECITABINE. [Suspect]
     Active Substance: CAPECITABINE
     Dosage: 4300 MG, Q3W
     Route: 048
     Dates: start: 20140521
  18. 5?FLUOROURACIL [Suspect]
     Active Substance: FLUOROURACIL
     Dosage: 5135 MG, Q2W
     Route: 042
     Dates: start: 20140107
  19. EMEND [Concomitant]
     Active Substance: APREPITANT
     Indication: PRODUCT USED FOR UNKNOWN INDICATION
     Dosage: 125/80 MG DAY 1 UNTIL DAY 3 OF CYCLE
     Route: 048
  20. 5?FLUOROURACIL [Suspect]
     Active Substance: FLUOROURACIL
     Dosage: 430 MBQ, Q3W
     Route: 040
     Dates: start: 20140212
  21. BEVACIZUMAB. [Suspect]
     Active Substance: BEVACIZUMAB
     Dosage: 720 MG, Q3W (WITH CAPECITABINE)
     Route: 042
     Dates: start: 20140508
  22. FOLINIC ACID [Concomitant]
     Active Substance: LEUCOVORIN
     Route: 042
     Dates: start: 20140107, end: 20140402
  23. PANTOPRAZOLE [Concomitant]
     Active Substance: PANTOPRAZOLE
     Indication: PRODUCT USED FOR UNKNOWN INDICATION
     Dosage: 40 MG, QD
     Route: 048

REACTIONS (10)
  - Guillain-Barre syndrome [Unknown]
  - Haemorrhoidal haemorrhage [Unknown]
  - Vomiting [Unknown]
  - Device related infection [Recovered/Resolved]
  - Pyrexia [Recovered/Resolved]
  - Diarrhoea [Unknown]
  - General physical health deterioration [Fatal]
  - Haematochezia [Unknown]
  - Polyneuropathy [Fatal]
  - Melaena [Unknown]

NARRATIVE: CASE EVENT DATE: 20140312
